FAERS Safety Report 7788152-7 (Version None)
Quarter: 2011Q3

REPORT INFORMATION
  Report Type: 
  Country: None (occurrence: None)
  Receive Date: 20110929
  Receipt Date: 20110929
  Transmission Date: 20111222
  Serious: Yes (Hospitalization)
  Sender: FDA-Public Use
  Company Number: None

PATIENT
  Sex: Male
  Weight: 66.2252 kg

DRUGS (1)
  1. VYVANSE [Suspect]
     Dosage: VYVANSE 50 MG Q 8 AM PO 047
     Route: 048
     Dates: start: 20110928

REACTIONS (1)
  - OCULOGYRIC CRISIS [None]
